FAERS Safety Report 10267262 (Version 1)
Quarter: 2014Q2

REPORT INFORMATION
  Report Type: Spontaneous
  Country: US (occurrence: None)
  Receive Date: 20140626
  Receipt Date: 20140626
  Transmission Date: 20141212
  Serious: No
  Sender: FDA-Public Use
  Company Number: None

PATIENT
  Sex: Female

DRUGS (3)
  1. SNORESTOP [Suspect]
     Indication: NASAL CONGESTION
     Dosage: 2 SPRAYS/EA. NOSTRIL
     Route: 045
  2. SNORESTOP [Suspect]
     Indication: SNORING
     Dosage: 2 SPRAYS/ORALLY
     Route: 048
  3. SNORESTOP [Suspect]
     Indication: SNORING
     Dosage: 2 TABLETS

REACTIONS (2)
  - Dizziness [None]
  - Wrong technique in drug usage process [None]
